FAERS Safety Report 19239760 (Version 1)
Quarter: 2021Q2

REPORT INFORMATION
  Report Type: Spontaneous
  Country: US (occurrence: US)
  Receive Date: 20210510
  Receipt Date: 20210510
  Transmission Date: 20210717
  Serious: Yes (Other)
  Sender: FDA-Public Use
  Company Number: US-TAKEDA-2021TUS028143

PATIENT
  Age: 45 Year
  Sex: Female
  Weight: 68 kg

DRUGS (10)
  1. HYQVIA [Suspect]
     Active Substance: HUMAN IMMUNOGLOBULIN G\HYALURONIDASE RECOMBINANT HUMAN
     Indication: HYPOGAMMAGLOBULINAEMIA
     Dosage: 5 GRAM
     Route: 051
     Dates: start: 20210409
  2. HYQVIA [Suspect]
     Active Substance: HUMAN IMMUNOGLOBULIN G\HYALURONIDASE RECOMBINANT HUMAN
     Indication: PRODUCT USED FOR UNKNOWN INDICATION
     Dosage: 10 GRAM
     Route: 051
     Dates: start: 20210416
  3. CLOBETASOL [Concomitant]
     Active Substance: CLOBETASOL
     Indication: PRURITUS
  4. METHYLPREDNISOLONE. [Concomitant]
     Active Substance: METHYLPREDNISOLONE
  5. TYLENOL [Concomitant]
     Active Substance: ACETAMINOPHEN
  6. ALVESCO [Concomitant]
     Active Substance: CICLESONIDE
     Indication: ASTHMA
  7. PEPCID [Concomitant]
     Active Substance: FAMOTIDINE
  8. BENADRYL [ACRIVASTINE] [Concomitant]
     Active Substance: ACRIVASTINE
     Dosage: 25 MILLIGRAM
     Route: 065
  9. BENADRYL [ACRIVASTINE] [Concomitant]
     Active Substance: ACRIVASTINE
     Dosage: 12.5 MILLIGRAM
     Route: 065
  10. ALVESCO [Concomitant]
     Active Substance: CICLESONIDE
     Indication: HYPERSENSITIVITY

REACTIONS (17)
  - Syncope [Unknown]
  - Infusion site pain [Unknown]
  - Infusion site warmth [Unknown]
  - Nausea [Unknown]
  - Infusion site erythema [Not Recovered/Not Resolved]
  - Fatigue [Unknown]
  - Abdominal discomfort [Unknown]
  - Infusion site rash [Unknown]
  - Pruritus [Unknown]
  - Tinnitus [Unknown]
  - Head injury [Unknown]
  - Rash [Recovered/Resolved]
  - Anaphylactic reaction [Unknown]
  - Infusion site pruritus [Recovered/Resolved]
  - Infusion site irritation [Recovered/Resolved]
  - Malaise [Unknown]
  - Fall [Unknown]

NARRATIVE: CASE EVENT DATE: 20210409
